FAERS Safety Report 6704408-0 (Version None)
Quarter: 2010Q2

REPORT INFORMATION
  Report Type: 
  Country: None (occurrence: None)
  Receive Date: 20100430
  Receipt Date: 20100427
  Transmission Date: 20101027
  Serious: Yes (Hospitalization, Other)
  Sender: FDA-Public Use
  Company Number: US-BRISTOL-MYERS SQUIBB COMPANY-15069404

PATIENT
  Age: 80 Year
  Sex: Female
  Weight: 60 kg

DRUGS (4)
  1. ERBITUX [Suspect]
     Indication: NON-SMALL CELL LUNG CANCER
     Dates: start: 20100112
  2. CARBOPLATIN [Suspect]
     Indication: NON-SMALL CELL LUNG CANCER
     Dates: start: 20100112
  3. TAXOL [Suspect]
     Indication: NON-SMALL CELL LUNG CANCER
     Dates: start: 20100112
  4. RADIATION THERAPY [Suspect]
     Indication: NON-SMALL CELL LUNG CANCER
     Dosage: 1 DOSAGES FORM = 60GY,NO OF FRACTION 30,NO OF ELASPSED DAYS 42.
     Dates: start: 20100112, end: 20100301

REACTIONS (7)
  - DECREASED APPETITE [None]
  - DEHYDRATION [None]
  - GASTROINTESTINAL HAEMORRHAGE [None]
  - LOSS OF CONSCIOUSNESS [None]
  - NEUTROPHIL COUNT DECREASED [None]
  - OESOPHAGITIS [None]
  - PRESYNCOPE [None]
